FAERS Safety Report 7297013-1 (Version None)
Quarter: 2011Q1

REPORT INFORMATION
  Report Type: 
  Country: None (occurrence: None)
  Receive Date: 20110204
  Receipt Date: 20110125
  Transmission Date: 20110831
  Serious: Yes (Hospitalization)
  Sender: FDA-Public Use
  Company Number: GER/UKI/11/0017254

PATIENT
  Age: 69 Year
  Sex: Female

DRUGS (5)
  1. RISPERIDONE [Suspect]
     Indication: PRODUCT USED FOR UNKNOWN INDICATION
  2. IBUPROFEN [Concomitant]
  3. VALPROIC ACID [Concomitant]
  4. LOFEPRAMINE (LOFEPRAMINE) [Concomitant]
  5. PROCYCLIDINE (PROCYCLIIINE) [Concomitant]

REACTIONS (15)
  - BLOOD PRESSURE DECREASED [None]
  - TOXICITY TO VARIOUS AGENTS [None]
  - ATRIAL FLUTTER [None]
  - SKIN EXFOLIATION [None]
  - PHOTOSENSITIVITY REACTION [None]
  - MALAISE [None]
  - ATRIAL FIBRILLATION [None]
  - DEHYDRATION [None]
  - RASH ERYTHEMATOUS [None]
  - PALPITATIONS [None]
  - HEART RATE INCREASED [None]
  - ATRIOVENTRICULAR BLOCK [None]
  - RENAL IMPAIRMENT [None]
  - SKIN BACTERIAL INFECTION [None]
  - BLISTER [None]
